FAERS Safety Report 8468740-5 (Version None)
Quarter: 2012Q2

REPORT INFORMATION
  Report Type: 
  Country: None (occurrence: None)
  Receive Date: 20120626
  Receipt Date: 20120614
  Transmission Date: 20120825
  Serious: Yes (Other)
  Sender: FDA-Public Use
  Company Number: US-ROCHE-799938

PATIENT
  Sex: Female

DRUGS (3)
  1. COPEGUS [Suspect]
     Indication: HEPATITIS C
     Dosage: IN DIVIDED DOSES
     Route: 048
  2. PEGASYS [Suspect]
     Indication: HEPATITIS C
     Route: 002
  3. COPEGUS [Suspect]
     Dosage: DOSE DECREASED

REACTIONS (15)
  - NAUSEA [None]
  - VOMITING [None]
  - TINNITUS [None]
  - SCAB [None]
  - MALAISE [None]
  - SKIN EXFOLIATION [None]
  - VISION BLURRED [None]
  - PULMONARY MASS [None]
  - TREMOR [None]
  - PAIN [None]
  - DEPRESSION [None]
  - DISTURBANCE IN ATTENTION [None]
  - DECREASED APPETITE [None]
  - SUICIDAL IDEATION [None]
  - SKIN DISORDER [None]
